FAERS Safety Report 6618768-2 (Version None)
Quarter: 2010Q1

REPORT INFORMATION
  Report Type: 
  Country: None (occurrence: None)
  Receive Date: 20100308
  Receipt Date: 20100301
  Transmission Date: 20100710
  Serious: Yes (Death, Other)
  Sender: FDA-Public Use
  Company Number: CN-BRISTOL-MYERS SQUIBB COMPANY-14968895

PATIENT
  Age: 72 Year
  Sex: Female

DRUGS (1)
  1. MAXIPIME [Suspect]
     Indication: PNEUMONIA
     Dosage: 2 GRAM PER DAY
     Route: 042

REACTIONS (9)
  - ATRIAL FIBRILLATION [None]
  - CHRONIC OBSTRUCTIVE PULMONARY DISEASE [None]
  - CORONARY ARTERY DISEASE [None]
  - GASTROINTESTINAL HAEMORRHAGE [None]
  - HYPERTENSION [None]
  - LUMBAR VERTEBRAL FRACTURE [None]
  - RECTOCELE [None]
  - RENAL FAILURE [None]
  - RESPIRATORY FAILURE [None]
